FAERS Safety Report 5921337-0 (Version None)
Quarter: 2008Q4

REPORT INFORMATION
  Report Type: 
  Country: None (occurrence: None)
  Receive Date: 20081016
  Receipt Date: 20081009
  Transmission Date: 20090506
  Serious: Yes (Hospitalization)
  Sender: FDA-Public Use
  Company Number: US-GILEAD-2008-0017561

PATIENT
  Sex: Male
  Weight: 60.836 kg

DRUGS (8)
  1. AMBRISENTAN [Suspect]
     Indication: PULMONARY HYPERTENSION
     Dates: start: 20080429
  2. AMBRISENTAN [Suspect]
     Dates: start: 20071108, end: 20080428
  3. HYDROCHLOROTHIAZIDE [Concomitant]
     Dates: start: 19920101, end: 20080722
  4. MECLIZINE [Concomitant]
     Dates: start: 20071102
  5. OXYGEN [Concomitant]
     Dates: start: 20040921
  6. LIPITOR [Concomitant]
     Dates: start: 20040101
  7. ASPIRIN [Concomitant]
     Dates: start: 20040101
  8. METAMUCIL [Concomitant]
     Dates: start: 20070101

REACTIONS (2)
  - ATRIAL FIBRILLATION [None]
  - DIZZINESS [None]
